FAERS Safety Report 7089583-3 (Version None)
Quarter: 2010Q4

REPORT INFORMATION
  Report Type: 
  Country: None (occurrence: None)
  Receive Date: 20101108
  Receipt Date: 20101029
  Transmission Date: 20110411
  Serious: Yes (Hospitalization, Other)
  Sender: FDA-Public Use
  Company Number: CA-ABBOTT-10P-028-0682445-00

PATIENT
  Sex: Female
  Weight: 41.768 kg

DRUGS (1)
  1. HUMIRA [Suspect]
     Indication: CROHN'S DISEASE
     Dosage: 80MG AT WEEK 2
     Route: 058
     Dates: start: 20101007

REACTIONS (3)
  - ABSCESS INTESTINAL [None]
  - PURULENT DISCHARGE [None]
  - WEIGHT DECREASED [None]
